FAERS Safety Report 5355121-6 (Version None)
Quarter: 2007Q2

REPORT INFORMATION
  Report Type: 
  Country: None (occurrence: None)
  Receive Date: 20070613
  Receipt Date: 20070606
  Transmission Date: 20071010
  Serious: Yes (Hospitalization)
  Sender: FDA-Public Use
  Company Number: PHEH2007US06299

PATIENT
  Age: 55 Year
  Sex: Male

DRUGS (7)
  1. ZELNORM [Suspect]
     Indication: DIVERTICULITIS
     Dosage: 6 MG, BID
     Route: 048
     Dates: start: 20061001, end: 20070424
  2. GLYBURIDE AND METFORMIN HCL [Concomitant]
     Indication: DIABETES MELLITUS
     Dosage: UNK, BID
  3. PRANDIN [Concomitant]
     Dosage: 1 MG, BID
  4. AVANDIA [Concomitant]
     Dosage: 4 MG, UNK
  5. LOPRESSOR [Concomitant]
     Dosage: 25 MG, BID
  6. LISINOPRIL [Concomitant]
     Dosage: 5 MG, UNK
  7. ZOCOR [Concomitant]
     Dosage: 40 MG, UNK

REACTIONS (2)
  - CORONARY ANGIOPLASTY [None]
  - MYOCARDIAL INFARCTION [None]
